FAERS Safety Report 14244909 (Version 2)
Quarter: 2018Q2

REPORT INFORMATION
  Report Type: Not Available
  Country: US (occurrence: US)
  Receive Date: 20171201
  Receipt Date: 20180419
  Transmission Date: 20180711
  Serious: No
  Sender: FDA-Public Use
  Company Number: US-NEUROCRINE BIOSCIENCES INC.-2017NBI01285

PATIENT
  Age: 59 Year
  Sex: Male

DRUGS (16)
  1. TRAZODONE [Concomitant]
     Active Substance: TRAZODONE HYDROCHLORIDE
     Indication: INSOMNIA
  2. METOPROLOL SUCCINATE. [Concomitant]
     Active Substance: METOPROLOL SUCCINATE
     Indication: HYPERTENSION
     Dosage: 25 MG HALF TABLET TWICE A DAY
  3. FLUVOXAMINE [Concomitant]
     Active Substance: FLUVOXAMINE
     Indication: SOCIAL ANXIETY DISORDER
     Dosage: 300 MG ONCE IN THE EVENING
  4. VITAMIN B12 [Concomitant]
     Active Substance: CYANOCOBALAMIN
     Indication: TARDIVE DYSKINESIA
  5. INGREZZA [Suspect]
     Active Substance: VALBENAZINE
     Route: 048
  6. GABAPENTIN. [Concomitant]
     Active Substance: GABAPENTIN
     Indication: ANXIETY
  7. ATROPINE SULFATE. [Concomitant]
     Active Substance: ATROPINE SULFATE
     Indication: DROOLING
  8. INGREZZA [Suspect]
     Active Substance: VALBENAZINE
     Indication: TARDIVE DYSKINESIA
     Route: 048
     Dates: start: 20170627, end: 20170703
  9. GABAPENTIN. [Concomitant]
     Active Substance: GABAPENTIN
     Indication: TREMOR
     Dosage: 600 MG AT BEDTIME AND 300 MG AS A PRN
  10. CARBIDOPA/LEVODOPA [Concomitant]
     Active Substance: CARBIDOPA\LEVODOPA
     Dosage: 25/100 MG 1.5 TABLETS FOUR TIMES A DAY
  11. INGREZZA [Suspect]
     Active Substance: VALBENAZINE
     Route: 048
     Dates: start: 20170704
  12. TRAZODONE [Concomitant]
     Active Substance: TRAZODONE HYDROCHLORIDE
     Dosage: 50 MG ONE TABLET AT BEDTIME (THIS WAS REDUCED FROM 100 MG TO 50 MG AFTER STARTING INGREZZA)
  13. LOVAZA [Concomitant]
     Active Substance: OMEGA-3-ACID ETHYL ESTERS
     Indication: ANTIOXIDANT THERAPY
     Dosage: 2 CAPSULES AT BEDTIME
  14. CLOZARIL [Suspect]
     Active Substance: CLOZAPINE
     Indication: SCHIZOPHRENIA
     Dosage: 200 MG AT NIGHT
  15. VITAMIN D3 [Concomitant]
     Active Substance: CHOLECALCIFEROL
     Indication: TARDIVE DYSKINESIA
  16. SOMA [Concomitant]
     Active Substance: CARISOPRODOL
     Dosage: 1 TABLET FOUR TIMES A DAY

REACTIONS (3)
  - Reduced facial expression [Unknown]
  - Drooling [Unknown]
  - Tremor [Unknown]

NARRATIVE: CASE EVENT DATE: 201709
